FAERS Safety Report 4892882-4 (Version None)
Quarter: 2006Q1

REPORT INFORMATION
  Report Type: 
  Country: None (occurrence: None)
  Receive Date: 20060126
  Receipt Date: 20051209
  Transmission Date: 20060701
  Serious: Yes (Life-Threatening, Hospitalization)
  Sender: FDA-Public Use
  Company Number: DE-MERCK-0512DEU00054

PATIENT
  Age: 22 Year
  Sex: Female
  Weight: 50 kg

DRUGS (4)
  1. SINGULAIR [Suspect]
     Indication: ASTHMA
     Route: 048
     Dates: start: 19990404, end: 19990404
  2. THEOPHYLLINE [Concomitant]
     Route: 048
  3. CETIRIZINE HYDROCHLORIDE [Concomitant]
     Route: 048
  4. CROMOLYN SODIUM [Concomitant]
     Route: 055

REACTIONS (2)
  - ANAPHYLACTIC SHOCK [None]
  - HYPOKALAEMIA [None]
